FAERS Safety Report 11048939 (Version 3)
Quarter: 2015Q4

REPORT INFORMATION
  Report Type: Spontaneous
  Country: US (occurrence: US)
  Receive Date: 20150420
  Receipt Date: 20151013
  Transmission Date: 20160304
  Serious: Yes (Disabling, Other)
  Sender: FDA-Public Use
  Company Number: US-009507513-1504USA017085

PATIENT
  Sex: Male
  Weight: 63.39 kg

DRUGS (1)
  1. PROPECIA [Suspect]
     Active Substance: FINASTERIDE
     Indication: ALOPECIA
     Dosage: 1 MG, QD
     Route: 048
     Dates: start: 201008, end: 201110

REACTIONS (18)
  - Suicide attempt [Unknown]
  - Anxiety [Not Recovered/Not Resolved]
  - Erectile dysfunction [Not Recovered/Not Resolved]
  - Libido decreased [Not Recovered/Not Resolved]
  - Insomnia [Not Recovered/Not Resolved]
  - Urinary tract disorder [Unknown]
  - Fatigue [Not Recovered/Not Resolved]
  - Semen viscosity abnormal [Not Recovered/Not Resolved]
  - Emotional distress [Not Recovered/Not Resolved]
  - Testicular atrophy [Unknown]
  - Male orgasmic disorder [Not Recovered/Not Resolved]
  - Prostatitis [Unknown]
  - Vertigo [Not Recovered/Not Resolved]
  - Cognitive disorder [Not Recovered/Not Resolved]
  - Rhinitis allergic [Unknown]
  - Depression [Not Recovered/Not Resolved]
  - Sexual dysfunction [Not Recovered/Not Resolved]
  - Abdominal pain [Unknown]

NARRATIVE: CASE EVENT DATE: 201110
